FAERS Safety Report 20954598 (Version 3)
Quarter: 2024Q1

REPORT INFORMATION
  Report Type: Spontaneous
  Country: CA (occurrence: CA)
  Receive Date: 20220614
  Receipt Date: 20240327
  Transmission Date: 20240410
  Serious: Yes (Hospitalization)
  Sender: FDA-Public Use
  Company Number: CA-ROCHE-1438917

PATIENT
  Age: 52 Year
  Sex: Female

DRUGS (72)
  1. CLONAZEPAM [Suspect]
     Active Substance: CLONAZEPAM
     Indication: Hypomania
     Route: 048
  2. DIAZEPAM [Suspect]
     Active Substance: DIAZEPAM
     Indication: Depression
     Route: 048
  3. DIAZEPAM [Suspect]
     Active Substance: DIAZEPAM
     Indication: Depression
  4. DIAZEPAM [Suspect]
     Active Substance: DIAZEPAM
     Indication: Depression
     Dosage: 250 MG 2 EVERY 1 DAY
     Route: 048
  5. ACETAMINOPHEN [Suspect]
     Active Substance: ACETAMINOPHEN
     Indication: Product used for unknown indication
     Dosage: THERAPY DURATION: 644 DAYS
     Route: 048
  6. ACETAMINOPHEN [Suspect]
     Active Substance: ACETAMINOPHEN
     Indication: Pain in extremity
     Dosage: THERAPY DURATION: 644 DAYS
     Route: 048
  7. EPIVAL [Suspect]
     Active Substance: DIVALPROEX SODIUM
     Indication: Depression
  8. EPIVAL [Suspect]
     Active Substance: DIVALPROEX SODIUM
     Indication: Depression
     Dosage: THERAPY DURATION: 187 DAYS, 250 MG 2 EVERY 1 DAY
     Route: 048
  9. EPIVAL [Suspect]
     Active Substance: DIVALPROEX SODIUM
     Indication: Depression
     Dosage: THERAPY DURATION: 187 DAYS
     Route: 048
  10. EPIVAL [Suspect]
     Active Substance: DIVALPROEX SODIUM
     Indication: Depression
  11. PROCYCLIDINE HYDROCHLORIDE [Suspect]
     Active Substance: PROCYCLIDINE HYDROCHLORIDE
     Indication: Prophylaxis
     Dosage: THERAPY DURATION: 153 DAYS
     Route: 048
  12. PROCYCLIDINE HYDROCHLORIDE [Suspect]
     Active Substance: PROCYCLIDINE HYDROCHLORIDE
     Indication: Product used for unknown indication
     Dosage: THERAPY DURATION: 153 DAYS
     Route: 048
  13. PROCYCLIDINE HYDROCHLORIDE [Suspect]
     Active Substance: PROCYCLIDINE HYDROCHLORIDE
     Indication: Musculoskeletal stiffness
     Dosage: THERAPY DURATION: 153 DAYS
     Route: 048
  14. RISPERIDONE [Suspect]
     Active Substance: RISPERIDONE
     Indication: Psychotic disorder
     Dosage: THERAPY DURATION: 47 DAYS
     Route: 048
  15. QUETIAPINE [Suspect]
     Active Substance: QUETIAPINE
     Indication: Product used for unknown indication
     Dosage: THERAPY DURATION: 24 DAYS
     Route: 048
  16. TEGRETOL [Suspect]
     Active Substance: CARBAMAZEPINE
     Indication: Hypomania
     Dosage: 200 MG 2 EVERY 1 DAY THERAPY DURATION: 10 DAYS
  17. TEGRETOL [Suspect]
     Active Substance: CARBAMAZEPINE
     Indication: Hypomania
     Dosage: 2 TIMES A DAY
  18. TIPRANAVIR [Suspect]
     Active Substance: TIPRANAVIR
     Indication: Product used for unknown indication
     Dosage: THERAPY DURATION: 788 DAYS
     Route: 048
  19. TRAZODONE [Suspect]
     Active Substance: TRAZODONE HYDROCHLORIDE
     Indication: Depression
     Dosage: THERAPY DURATION: 45 DAYS
     Route: 048
  20. TRAZODONE [Suspect]
     Active Substance: TRAZODONE HYDROCHLORIDE
     Indication: Depression
     Route: 048
  21. OLANZAPINE [Suspect]
     Active Substance: OLANZAPINE
     Indication: Musculoskeletal stiffness
     Dosage: THERAPY DURATION: 555 DAYS
     Route: 048
  22. OLANZAPINE [Suspect]
     Active Substance: OLANZAPINE
     Indication: Psychotic disorder
     Dosage: THERAPY DURATION: 555 DAYS
     Route: 048
  23. OLANZAPINE [Suspect]
     Active Substance: OLANZAPINE
     Indication: Musculoskeletal stiffness
     Dosage: THERAPY DURATION: 555 DAYS
     Route: 048
  24. OLANZAPINE [Suspect]
     Active Substance: OLANZAPINE
     Indication: Psychotic disorder
     Dosage: THERAPY DURATION: 555 DAYS
     Route: 048
  25. APTIVUS [Suspect]
     Active Substance: TIPRANAVIR
     Indication: HIV infection
     Route: 048
  26. QUETIAPINE [Suspect]
     Active Substance: QUETIAPINE
     Indication: Psychotic disorder
     Route: 048
  27. ACLIDINIUM BROMIDE [Suspect]
     Active Substance: ACLIDINIUM BROMIDE
     Indication: Chronic obstructive pulmonary disease
  28. ACLIDINIUM BROMIDE\FORMOTEROL FUMARATE [Suspect]
     Active Substance: ACLIDINIUM BROMIDE\FORMOTEROL FUMARATE
  29. ATROVENT [Suspect]
     Active Substance: IPRATROPIUM BROMIDE
  30. BREO ELLIPTA [Suspect]
     Active Substance: FLUTICASONE FUROATE\VILANTEROL TRIFENATATE
     Dosage: INHALATION
  31. BUDESONIDE\FORMOTEROL FUMARATE [Suspect]
     Active Substance: BUDESONIDE\FORMOTEROL FUMARATE
  32. CIPROFLOXACIN HYDROCHLORIDE [Suspect]
     Active Substance: CIPROFLOXACIN HYDROCHLORIDE
  33. GLYCOPYRROLATE [Suspect]
     Active Substance: GLYCOPYRROLATE
  34. MEPOLIZUMAB [Suspect]
     Active Substance: MEPOLIZUMAB
  35. MOXIFLOXACIN HYDROCHLORIDE [Suspect]
     Active Substance: MOXIFLOXACIN HYDROCHLORIDE\MOXIFLOXACIN HYDROCHLORIDE MONOHYDRATE
  36. NASONEX [Suspect]
     Active Substance: MOMETASONE FUROATE
     Route: 045
  37. OLODATEROL HYDROCHLORIDE\TIOTROPIUM BROMIDE MONOHYDRATE [Suspect]
     Active Substance: OLODATEROL HYDROCHLORIDE\TIOTROPIUM BROMIDE MONOHYDRATE
  38. OMNARIS [Suspect]
     Active Substance: CICLESONIDE
     Indication: Seasonal allergy
  39. OMNARIS [Suspect]
     Active Substance: CICLESONIDE
     Indication: Rhinitis allergic
  40. PREDNISONE [Suspect]
     Active Substance: PREDNISONE
  41. AZITHROMYCIN [Suspect]
     Active Substance: AZITHROMYCIN
  42. ALBUTEROL [Suspect]
     Active Substance: ALBUTEROL
     Indication: Psychotic disorder
  43. SINGULAIR [Suspect]
     Active Substance: MONTELUKAST SODIUM
  44. SPIRIVA [Suspect]
     Active Substance: TIOTROPIUM BROMIDE MONOHYDRATE
  45. GLYCOPYRRONIUM\INDACATEROL [Suspect]
     Active Substance: GLYCOPYRRONIUM\INDACATEROL
     Indication: Depression
  46. GLYCOPYRRONIUM\INDACATEROL [Suspect]
     Active Substance: GLYCOPYRRONIUM\INDACATEROL
     Indication: Depression
     Route: 048
  47. GLYCOPYRRONIUM\INDACATEROL [Suspect]
     Active Substance: GLYCOPYRRONIUM\INDACATEROL
     Indication: Depression
     Route: 048
  48. UMECLIDINIUM BROMIDE [Suspect]
     Active Substance: UMECLIDINIUM BROMIDE
  49. UMECLIDINIUM BROMIDE\VILANTEROL TRIFENATATE [Suspect]
     Active Substance: UMECLIDINIUM BROMIDE\VILANTEROL TRIFENATATE
  50. ZENHALE [Suspect]
     Active Substance: FORMOTEROL FUMARATE\MOMETASONE FUROATE
     Dosage: AEROSOL, METERED DOSE
  51. ACETAMINOPHEN AND DIPHENHYDRAMINE HYDROCHLORIDE [Suspect]
     Active Substance: ACETAMINOPHEN\DIPHENHYDRAMINE HYDROCHLORIDE
  52. LAMIVUDINE [Concomitant]
     Active Substance: LAMIVUDINE
  53. BENADRYL [Concomitant]
     Active Substance: DIPHENHYDRAMINE HYDROCHLORIDE
     Indication: Product used for unknown indication
  54. BISACODYL [Concomitant]
     Active Substance: BISACODYL
  55. CALCIUM CARBONATE [Concomitant]
     Active Substance: CALCIUM CARBONATE
  56. CHLORAL HYDRATE [Concomitant]
     Active Substance: CHLORAL HYDRATE
  57. IMODIUM [Concomitant]
     Active Substance: LOPERAMIDE HYDROCHLORIDE
  58. KALETRA [Concomitant]
     Active Substance: LOPINAVIR\RITONAVIR
     Indication: Depression
  59. KALETRA [Concomitant]
     Active Substance: LOPINAVIR\RITONAVIR
     Indication: Depression
     Route: 048
  60. KALETRA [Concomitant]
     Active Substance: LOPINAVIR\RITONAVIR
     Indication: Depression
     Route: 048
  61. KALETRA [Concomitant]
     Active Substance: LOPINAVIR\RITONAVIR
     Indication: Depression
  62. NYSTATIN [Concomitant]
     Active Substance: NYSTATIN
  63. LACTULOSE [Concomitant]
     Active Substance: LACTULOSE
  64. ABACAVIR [Concomitant]
     Active Substance: ABACAVIR
     Indication: Product used for unknown indication
  65. ATOVAQUONE\PROGUANIL HYDROCHLORIDE [Concomitant]
     Active Substance: ATOVAQUONE\PROGUANIL HYDROCHLORIDE
     Indication: Product used for unknown indication
  66. LITHIUM [Concomitant]
     Active Substance: LITHIUM
     Indication: Product used for unknown indication
  67. SERTRALINE [Concomitant]
     Active Substance: SERTRALINE HYDROCHLORIDE
     Indication: Product used for unknown indication
  68. ENFUVIRTIDE [Concomitant]
     Active Substance: ENFUVIRTIDE
     Indication: Product used for unknown indication
  69. ENFUVIRTIDE [Concomitant]
     Active Substance: ENFUVIRTIDE
     Indication: Product used for unknown indication
     Route: 048
  70. ACRIVASTINE [Concomitant]
     Active Substance: ACRIVASTINE
  71. MEGA VIM [Concomitant]
  72. ACETAMINOPHEN\DIPHENHYDRAMINE\PHENYLPROPANOLAMINE [Concomitant]
     Active Substance: ACETAMINOPHEN\DIPHENHYDRAMINE\PHENYLPROPANOLAMINE

REACTIONS (24)
  - Blood bilirubin increased [Recovered/Resolved]
  - Cholelithiasis [Recovered/Resolved]
  - Condition aggravated [Recovered/Resolved]
  - Hepatic enzyme increased [Recovered/Resolved]
  - Hepatotoxicity [Recovered/Resolved]
  - Hypomania [Recovered/Resolved]
  - Jaundice cholestatic [Recovered/Resolved]
  - Nausea [Recovered/Resolved]
  - Pneumonia [Recovered/Resolved]
  - Psychotic disorder [Recovered/Resolved]
  - Schizophrenia [Recovered/Resolved]
  - Vomiting [Recovered/Resolved]
  - Asthma-chronic obstructive pulmonary disease overlap syndrome [Recovered/Resolved]
  - Bronchiectasis [Recovered/Resolved]
  - Cardiac murmur [Recovered/Resolved]
  - Chronic obstructive pulmonary disease [Recovered/Resolved]
  - Gastrooesophageal reflux disease [Recovered/Resolved]
  - Lung neoplasm malignant [Recovered/Resolved]
  - Nasal polyps [Recovered/Resolved]
  - Oedema peripheral [Recovered/Resolved]
  - Rhinitis allergic [Recovered/Resolved]
  - Sarcoidosis [Recovered/Resolved]
  - Total lung capacity increased [Recovered/Resolved]
  - Wheezing [Recovered/Resolved]
